FAERS Safety Report 4822403-3 (Version None)
Quarter: 2005Q4

REPORT INFORMATION
  Report Type: 
  Country: None (occurrence: None)
  Receive Date: 20051104
  Receipt Date: 20051104
  Transmission Date: 20060501
  Serious: Yes (Death, Hospitalization)
  Sender: FDA-Public Use
  Company Number: None

PATIENT
  Sex: Male
  Weight: 79.8331 kg

DRUGS (21)
  1. COUMADIN [Suspect]
     Indication: PROPHYLAXIS
     Dosage: 5MG  DAILY  PO
     Route: 048
     Dates: start: 20050325, end: 20050407
  2. COUMADIN [Suspect]
     Indication: PULMONARY EMBOLISM
     Dosage: 5MG  DAILY  PO
     Route: 048
     Dates: start: 20050325, end: 20050407
  3. COUMADIN [Suspect]
     Indication: THROMBOSIS PROPHYLAXIS
     Dosage: 5MG  DAILY  PO
     Route: 048
     Dates: start: 20050325, end: 20050407
  4. GEMCITABINE [Suspect]
     Indication: LUNG NEOPLASM MALIGNANT
     Dosage: 1900MG  2 TREATMENTS IV
     Route: 042
     Dates: start: 20050329, end: 20050405
  5. PREVACID [Concomitant]
  6. DETROL LA [Concomitant]
  7. OXYCODONE [Concomitant]
  8. SENNA [Concomitant]
  9. COUMADIN [Concomitant]
  10. FLOMAX [Concomitant]
  11. NEURONTIN [Concomitant]
  12. LIPITOR [Concomitant]
  13. THALIDOMIDE [Concomitant]
  14. GEMCITABINE [Concomitant]
  15. IRINOTECAN HCL [Concomitant]
  16. PERCOCET [Concomitant]
  17. COLACE [Concomitant]
  18. AMBIEN [Concomitant]
  19. IBUPROFEN [Concomitant]
  20. FENA [Concomitant]
  21. MULTI-VITAMINS [Concomitant]

REACTIONS (9)
  - ASTHENIA [None]
  - DIZZINESS [None]
  - HAEMORRHAGE [None]
  - HEAD INJURY [None]
  - HYPOXIA [None]
  - LOSS OF CONSCIOUSNESS [None]
  - PLEURAL EFFUSION [None]
  - PNEUMOCYSTIS JIROVECI PNEUMONIA [None]
  - PNEUMONIA PRIMARY ATYPICAL [None]
